FAERS Safety Report 4284733-6 (Version None)
Quarter: 2004Q1

REPORT INFORMATION
  Report Type: 
  Country: None (occurrence: None)
  Receive Date: 20040202
  Receipt Date: 20040116
  Transmission Date: 20041129
  Serious: Yes (Hospitalization)
  Sender: FDA-Public Use
  Company Number: 7270

PATIENT
  Age: 42 Year
  Sex: Female

DRUGS (9)
  1. LEUCOVORIN CALCIUM [Suspect]
     Route: 048
  2. COMBIVIR [Suspect]
     Dates: start: 20020715
  3. PREDNISONE [Suspect]
  4. PYRIMETHAMINE [Suspect]
     Dates: start: 20031031
  5. OMEPRAZOLE [Suspect]
  6. TENOFOVIR DISOPROXIL FUMARATE [Suspect]
     Dates: start: 20030315
  7. .. [Concomitant]
  8. HYDROXYZINE [Concomitant]
  9. CALCIUM CARBONATE [Concomitant]

REACTIONS (2)
  - ARTHRALGIA [None]
  - OSTEOPOROSIS [None]
